FAERS Safety Report 6712058-5 (Version None)
Quarter: 2010Q2

REPORT INFORMATION
  Report Type: 
  Country: None (occurrence: None)
  Receive Date: 20100505
  Receipt Date: 20100422
  Transmission Date: 20101027
  Serious: Yes (Hospitalization)
  Sender: FDA-Public Use
  Company Number: PHHY2010US26166

PATIENT
  Sex: Female
  Weight: 97.506 kg

DRUGS (1)
  1. ZOMETA [Suspect]
     Indication: MULTIPLE MYELOMA
     Dosage: 4 MG, QMO
     Route: 042
     Dates: start: 20070410, end: 20090416

REACTIONS (4)
  - ABSCESS NECK [None]
  - INCISIONAL DRAINAGE [None]
  - OSTEONECROSIS OF JAW [None]
  - TOOTH EXTRACTION [None]
